FAERS Safety Report 5792604-9 (Version None)
Quarter: 2008Q2

REPORT INFORMATION
  Report Type: 
  Country: None (occurrence: None)
  Receive Date: 20080626
  Receipt Date: 20080617
  Transmission Date: 20081010
  Serious: Yes (Other)
  Sender: FDA-Public Use
  Company Number: JP-PFIZER INC-2008050997

PATIENT
  Age: 82 Year
  Sex: Male

DRUGS (1)
  1. VFEND [Suspect]
     Route: 042
     Dates: start: 20080411, end: 20080416

REACTIONS (1)
  - ILEUS PARALYTIC [None]
